FAERS Safety Report 16723062 (Version 1)
Quarter: 2019Q3

REPORT INFORMATION
  Report Type: Other
  Country: IN (occurrence: IN)
  Receive Date: 20190821
  Receipt Date: 20190821
  Transmission Date: 20191005
  Serious: Yes (Other)
  Sender: FDA-Public Use
  Company Number: IN-DEXPHARM-20190640

PATIENT
  Sex: Male

DRUGS (4)
  1. OMEPRAZOLE. [Suspect]
     Active Substance: OMEPRAZOLE
  2. GLIBENCLAMIDE [Suspect]
     Active Substance: GLYBURIDE
  3. DICLOFENAC [Suspect]
     Active Substance: DICLOFENAC
  4. METFORMIN [Suspect]
     Active Substance: METFORMIN HYDROCHLORIDE

REACTIONS (4)
  - Blood glucose abnormal [Unknown]
  - Drug ineffective [Unknown]
  - Abdominal pain upper [Unknown]
  - Drug interaction [Unknown]
